FAERS Safety Report 10907428 (Version 1)
Quarter: 2015Q1

REPORT INFORMATION
  Report Type: Spontaneous
  Country: US (occurrence: None)
  Receive Date: 20150309
  Receipt Date: 20150309
  Transmission Date: 20150721
  Serious: Yes (Disabling)
  Sender: FDA-Public Use
  Company Number: None

PATIENT
  Age: 60 Year
  Sex: Female
  Weight: 90.72 kg

DRUGS (4)
  1. CELEBREX [Concomitant]
     Active Substance: CELECOXIB
  2. LEVOCITERIZINE [Concomitant]
  3. TRAMADOL [Concomitant]
     Active Substance: TRAMADOL
  4. LEVOFLOXACIN 750 MG ZYDUS [Suspect]
     Active Substance: LEVOFLOXACIN
     Indication: BRONCHITIS BACTERIAL
     Dosage: 1 PILL ONCE DAILY TAKEN BY MOUTH
     Route: 048
     Dates: start: 20150114, end: 20150124

REACTIONS (5)
  - Pain in extremity [None]
  - Arthralgia [None]
  - Joint range of motion decreased [None]
  - Activities of daily living impaired [None]
  - Musculoskeletal pain [None]

NARRATIVE: CASE EVENT DATE: 20150214
